FAERS Safety Report 9861927 (Version 2)
Quarter: 2014Q1

REPORT INFORMATION
  Report Type: Report from Study
  Country: FR (occurrence: FR)
  Receive Date: 20140203
  Receipt Date: 20140313
  Transmission Date: 20141002
  Serious: Yes (Death, Disabling)
  Sender: FDA-Public Use
  Company Number: FR-CELGENEUS-056-21880-14013639

PATIENT
  Age: 61 Year
  Sex: Female
  Weight: 57.8 kg

DRUGS (29)
  1. REVLIMID [Suspect]
     Indication: PLASMA CELL MYELOMA
     Route: 048
     Dates: start: 20121004, end: 20130307
  2. REVLIMID [Suspect]
     Route: 048
     Dates: start: 20130404
  3. THALIDOMIDE [Suspect]
     Indication: PLASMA CELL MYELOMA
     Route: 065
     Dates: start: 20100820, end: 20100914
  4. THALIDOMIDE [Suspect]
     Dosage: 100 MILLIGRAM
     Route: 065
     Dates: start: 20101021, end: 20110203
  5. PLACEBO FOR REVLIMID [Suspect]
     Indication: PLASMA CELL MYELOMA
     Route: 048
     Dates: end: 201002
  6. MELPHALAN [Suspect]
     Indication: PLASMA CELL MYELOMA
     Route: 065
     Dates: start: 20060430
  7. BENDAMUSTINE [Suspect]
     Indication: PLASMA CELL MYELOMA
     Route: 065
     Dates: start: 201002
  8. BENDAMUSTINE [Suspect]
     Route: 065
     Dates: start: 20130527, end: 20130812
  9. DEXAMETHASONE [Concomitant]
     Indication: PLASMA CELL MYELOMA
     Route: 065
     Dates: start: 20100215, end: 20100329
  10. DEXAMETHASONE [Concomitant]
     Route: 065
     Dates: start: 20121004, end: 20130307
  11. DEXAMETHASONE [Concomitant]
     Route: 065
     Dates: start: 20060111, end: 20060317
  12. DEXAMETHASONE [Concomitant]
     Route: 065
     Dates: start: 20100517
  13. DEXAMETHASONE [Concomitant]
     Route: 065
     Dates: start: 20100820, end: 20100914
  14. DEXAMETHASONE [Concomitant]
     Route: 065
     Dates: start: 20110217
  15. DEXAMETHASONE [Concomitant]
     Route: 065
     Dates: start: 20130404
  16. DOXORUBICIN [Concomitant]
     Indication: PLASMA CELL MYELOMA
     Route: 065
     Dates: start: 20100215, end: 20100329
  17. ENDOXAN [Concomitant]
     Indication: PLASMA CELL MYELOMA
     Route: 065
     Dates: start: 20100419
  18. VELCADE [Concomitant]
     Indication: PLASMA CELL MYELOMA
     Route: 065
     Dates: start: 201002, end: 201102
  19. VELCADE [Concomitant]
     Route: 065
     Dates: start: 20121004, end: 20130307
  20. VELCADE [Concomitant]
     Route: 065
     Dates: start: 20060111, end: 20060317
  21. VELCADE [Concomitant]
     Route: 065
     Dates: start: 20100517
  22. VELCADE [Concomitant]
     Route: 065
     Dates: start: 20100820, end: 20100914
  23. VELCADE [Concomitant]
     Route: 065
     Dates: start: 20110217
  24. VELCADE [Concomitant]
     Route: 065
     Dates: start: 20130404
  25. SERETIDE [Concomitant]
     Indication: PRODUCT USED FOR UNKNOWN INDICATION
     Route: 065
  26. COVERSYL [Concomitant]
     Indication: PRODUCT USED FOR UNKNOWN INDICATION
     Route: 065
  27. BROMAZEPAM [Concomitant]
     Indication: PRODUCT USED FOR UNKNOWN INDICATION
     Route: 065
  28. PLATELET [Concomitant]
     Indication: PRODUCT USED FOR UNKNOWN INDICATION
     Route: 065
  29. RED BLOOD CELLS [Concomitant]
     Indication: PRODUCT USED FOR UNKNOWN INDICATION
     Route: 065

REACTIONS (1)
  - Refractory anaemia with an excess of blasts [Fatal]
